FAERS Safety Report 14226283 (Version 3)
Quarter: 2018Q2

REPORT INFORMATION
  Report Type: Spontaneous
  Country: JP (occurrence: JP)
  Receive Date: 20171127
  Receipt Date: 20180518
  Transmission Date: 20180711
  Serious: Yes (Life-Threatening, Hospitalization, Other)
  Sender: FDA-Public Use
  Company Number: JP-PFIZER INC-2017501529

PATIENT
  Age: 79 Year
  Sex: Male

DRUGS (1)
  1. SUTENT [Suspect]
     Active Substance: SUNITINIB MALATE
     Indication: RENAL CELL CARCINOMA
     Dosage: 25 MG, 1X/DAY
     Route: 048
     Dates: start: 20170801

REACTIONS (5)
  - Hypertension [Recovering/Resolving]
  - Pyrexia [Unknown]
  - Aortic dissection [Recovered/Resolved]
  - Benign prostatic hyperplasia [Unknown]
  - Post procedural infection [Unknown]

NARRATIVE: CASE EVENT DATE: 20171107
